FAERS Safety Report 4434567-4 (Version None)
Quarter: 2004Q3

REPORT INFORMATION
  Report Type: 
  Country: None (occurrence: None)
  Receive Date: 20040721
  Receipt Date: 20031105
  Transmission Date: 20050211
  Serious: Yes (Other)
  Sender: FDA-Public Use
  Company Number: WAES 0311USA00493

PATIENT
  Age: 56 Year
  Sex: Male
  Weight: 108.4097 kg

DRUGS (4)
  1. VIOXX [Suspect]
     Dosage: PO
     Route: 048
     Dates: end: 20030101
  2. FIORICET W/ CODEINE [Concomitant]
  3. LIPITOR [Concomitant]
  4. VITAMINS (UNSPECIFIED) [Concomitant]

REACTIONS (1)
  - GASTRIC ULCER [None]
